FAERS Safety Report 12833357 (Version 2)
Quarter: 2016Q4

REPORT INFORMATION
  Report Type: Report from Study
  Country: US (occurrence: US)
  Receive Date: 20161010
  Receipt Date: 20161102
  Transmission Date: 20170207
  Serious: Yes (Hospitalization)
  Sender: FDA-Public Use
  Company Number: US-ACTELION-A-NJ2015-111873

PATIENT
  Age: 65 Year
  Sex: Female

DRUGS (5)
  1. NIFEDIPINE. [Concomitant]
     Active Substance: NIFEDIPINE
  2. OPSUMIT [Suspect]
     Active Substance: MACITENTAN
     Indication: PULMONARY HYPERTENSION
     Dosage: 10 MG, QD
     Route: 048
     Dates: start: 20140204
  3. PREDNISONE. [Concomitant]
     Active Substance: PREDNISONE
  4. VELETRI [Suspect]
     Active Substance: EPOPROSTENOL
     Indication: PULMONARY HYPERTENSION
     Dosage: 38.35 UNK, UNK
     Route: 042
     Dates: start: 20130318
  5. ADCIRCA [Concomitant]
     Active Substance: TADALAFIL

REACTIONS (12)
  - Dyspnoea [Unknown]
  - Pain in jaw [Unknown]
  - Bronchitis [Unknown]
  - Ear disorder [Unknown]
  - Sinus disorder [Unknown]
  - Oedema [Unknown]
  - Sinusitis [Unknown]
  - Flushing [Unknown]
  - Erythema [Unknown]
  - Dyspnoea exertional [Unknown]
  - Tinnitus [Unknown]
  - Pulmonary arterial wedge pressure increased [Unknown]

NARRATIVE: CASE EVENT DATE: 20160926
